FAERS Safety Report 7487289-X (Version None)
Quarter: 2011Q2

REPORT INFORMATION
  Report Type: 
  Country: None (occurrence: None)
  Receive Date: 20110518
  Receipt Date: 20101223
  Transmission Date: 20111010
  Serious: Yes (Hospitalization)
  Sender: FDA-Public Use
  Company Number: US-BAYER-201022277NA

PATIENT
  Age: 38 Year
  Sex: Female
  Weight: 82 kg

DRUGS (10)
  1. YAZ [Suspect]
     Indication: PRODUCT USED FOR UNKNOWN INDICATION
     Dosage: UNK
     Route: 048
  2. AMITRIPTYLINE HCL [Concomitant]
     Dosage: 10 MG, BID
     Route: 048
  3. YASMIN [Suspect]
     Indication: ORAL CONTRACEPTION
     Dosage: UNK UNK, QD
     Route: 048
     Dates: start: 20051227, end: 20080328
  4. PREDNISONE [Concomitant]
  5. SELECTIVE IMMUNOSUPPRESSIVE AGENTS [Concomitant]
     Dosage: UNK UNK, Q1MON
     Route: 042
  6. PREDNISONE [Concomitant]
  7. ACTONEL [Concomitant]
     Indication: OSTEOPOROSIS
     Dosage: 75 MG, Q2WK
     Route: 048
     Dates: start: 20050101
  8. LASIX [Concomitant]
     Route: 048
  9. METOPROLOL TARTRATE [Concomitant]
     Dosage: 200 MG, QD
     Route: 048
  10. PREDNISONE [Concomitant]
     Indication: RHEUMATOID ARTHRITIS
     Dosage: 8 MG, QD
     Route: 048

REACTIONS (3)
  - PAIN [None]
  - MYOCARDIAL INFARCTION [None]
  - INJURY [None]
